FAERS Safety Report 21793158 (Version 2)
Quarter: 2023Q1

REPORT INFORMATION
  Report Type: Spontaneous
  Country: FR (occurrence: FR)
  Receive Date: 20221229
  Receipt Date: 20230214
  Transmission Date: 20230417
  Serious: No
  Sender: FDA-Public Use
  Company Number: FR-PFIZER INC-202201386620

PATIENT

DRUGS (1)
  1. SOMAVERT [Suspect]
     Active Substance: PEGVISOMANT
     Dosage: 40 MG

REACTIONS (4)
  - Device use error [Unknown]
  - Liquid product physical issue [Unknown]
  - Drug dose omission by device [Unknown]
  - Off label use [Unknown]
